FAERS Safety Report 21164150 (Version 1)
Quarter: 2022Q3

REPORT INFORMATION
  Report Type: Spontaneous
  Country: IT (occurrence: IT)
  Receive Date: 20220803
  Receipt Date: 20220803
  Transmission Date: 20221027
  Serious: Yes (Other)
  Sender: FDA-Public Use
  Company Number: None

PATIENT
  Sex: Male

DRUGS (6)
  1. METHOTREXATE [Suspect]
     Active Substance: METHOTREXATE
     Indication: Rheumatoid arthritis
     Dosage: DURATION : 1 YEAR
     Dates: start: 201706, end: 201812
  2. OLUMIANT [Suspect]
     Active Substance: BARICITINIB
     Indication: Rheumatoid arthritis
     Dosage: 4 MILLIGRAM DAILY; 4 MG / DAY
     Dates: start: 2018
  3. ETANERCEPT [Suspect]
     Active Substance: ETANERCEPT
     Indication: Rheumatoid arthritis
     Dosage: 50 MG PER WEEK, DURATION : 3 MONTHS
     Dates: start: 201710, end: 201801
  4. CHOLECALCIFEROL [Concomitant]
     Active Substance: CHOLECALCIFEROL
     Indication: Vitamin D deficiency
     Dosage: 25000 IU PER MONTH
  5. LAMIVUDINE [Concomitant]
     Active Substance: LAMIVUDINE
     Indication: Hepatitis B
     Dosage: 100 MILLIGRAM DAILY; 100 MG PER DAY
  6. TERAZOSINE HYDROCHLORIDE [Concomitant]
     Indication: Benign prostatic hyperplasia
     Dosage: 2.5 MILLIGRAM DAILY; 2.5 MG PER DAY

REACTIONS (2)
  - Bladder transitional cell carcinoma [Recovered/Resolved]
  - Bladder transitional cell carcinoma recurrent [Not Recovered/Not Resolved]

NARRATIVE: CASE EVENT DATE: 20190101
